FAERS Safety Report 4843630-5 (Version None)
Quarter: 2005Q4

REPORT INFORMATION
  Report Type: 
  Country: None (occurrence: None)
  Receive Date: 20051125
  Receipt Date: 20051111
  Transmission Date: 20060501
  Serious: Yes (Hospitalization, Other)
  Sender: FDA-Public Use
  Company Number: US200511000098

PATIENT
  Sex: Female

DRUGS (3)
  1. FORTEO [Suspect]
     Indication: OSTEOPOROSIS
     Dates: start: 20040801
  2. FORTEO [Concomitant]
  3. SIMVASTATIN [Concomitant]

REACTIONS (7)
  - ABDOMINAL PAIN UPPER [None]
  - ABDOMINAL RIGIDITY [None]
  - APPENDIX DISORDER [None]
  - CONDITION AGGRAVATED [None]
  - NEUROFIBROMATOSIS [None]
  - NODULE [None]
  - PHARMACEUTICAL PRODUCT COMPLAINT [None]
